FAERS Safety Report 13953914 (Version 1)
Quarter: 2017Q3

REPORT INFORMATION
  Report Type: Spontaneous
  Country: US (occurrence: None)
  Receive Date: 20170909
  Receipt Date: 20170909
  Transmission Date: 20171128
  Serious: No
  Sender: FDA-Public Use
  Company Number: None

PATIENT
  Age: 59 Year
  Sex: Female

DRUGS (1)
  1. COSENTYX [Suspect]
     Active Substance: SECUKINUMAB

REACTIONS (3)
  - Wrong technique in device usage process [None]
  - Injury [None]
  - Injury associated with device [None]

NARRATIVE: CASE EVENT DATE: 20170908
